FAERS Safety Report 19789878 (Version 1)
Quarter: 2021Q3

REPORT INFORMATION
  Report Type: Spontaneous
  Country: CA (occurrence: CA)
  Receive Date: 20210904
  Receipt Date: 20210904
  Transmission Date: 20211014
  Serious: Yes (Hospitalization)
  Sender: FDA-Public Use
  Company Number: CA-TEVA-2021-CA-1947878

PATIENT
  Age: 58 Year
  Sex: Female

DRUGS (8)
  1. MINT DULOXETINE [Concomitant]
     Route: 065
  2. MINT DULOXETINE [Concomitant]
     Indication: DEPRESSION
     Route: 065
  3. METHOTREXATE. [Suspect]
     Active Substance: METHOTREXATE
     Indication: PRODUCT USED FOR UNKNOWN INDICATION
     Route: 065
  4. MINT DULOXETINE [Concomitant]
     Indication: ANXIETY
     Dosage: 120 MILLIGRAM DAILY;
     Route: 065
  5. MINT DULOXETINE [Concomitant]
     Dosage: 120 MILLIGRAM DAILY;
     Route: 065
  6. LEUCOVORIN CALCIUM. [Suspect]
     Active Substance: LEUCOVORIN CALCIUM
     Indication: PRODUCT USED FOR UNKNOWN INDICATION
     Route: 065
  7. BUDESONIDE. [Suspect]
     Active Substance: BUDESONIDE
     Indication: PRODUCT USED FOR UNKNOWN INDICATION
     Dosage: 6 MILLIGRAM DAILY;
     Route: 055
  8. UMECLIDINIUM BROMIDE [Suspect]
     Active Substance: UMECLIDINIUM BROMIDE
     Indication: PRODUCTIVE COUGH
     Dosage: 62.5 MICROGRAM DAILY;
     Route: 055

REACTIONS (2)
  - Drug ineffective [Unknown]
  - Condition aggravated [Unknown]
